FAERS Safety Report 14735479 (Version 1)
Quarter: 2018Q2

REPORT INFORMATION
  Report Type: Spontaneous
  Country: US (occurrence: US)
  Receive Date: 20180403
  Receipt Date: 20180403
  Transmission Date: 20180711
  Serious: Yes (Other)
  Sender: FDA-Public Use
  Company Number: None

PATIENT
  Age: 78 Year
  Sex: Male
  Weight: 87.75 kg

DRUGS (10)
  1. IPRATROPIUM [Concomitant]
     Active Substance: IPRATROPIUM
  2. AMLIPODINE BESYLATE [Concomitant]
  3. PREDNISONE. [Concomitant]
     Active Substance: PREDNISONE
  4. ALBUTEROL. [Concomitant]
     Active Substance: ALBUTEROL
  5. BROVANA [Concomitant]
     Active Substance: ARFORMOTEROL TARTRATE
  6. ALPRAZOLAM. [Concomitant]
     Active Substance: ALPRAZOLAM
  7. ZANTAC [Concomitant]
     Active Substance: RANITIDINE HYDROCHLORIDE
  8. BUDESONIDE. [Suspect]
     Active Substance: BUDESONIDE
     Indication: DYSPNOEA
     Dosage: ?          QUANTITY:1 INHALATION(S);?
     Route: 055
  9. ARNUITY ELLIPTA [Concomitant]
     Active Substance: FLUTICASONE FUROATE
  10. ATORVASTATIN [Concomitant]
     Active Substance: ATORVASTATIN

REACTIONS (3)
  - Product contamination physical [None]
  - Dyspnoea [None]
  - Condition aggravated [None]

NARRATIVE: CASE EVENT DATE: 20171122
